FAERS Safety Report 16198192 (Version 1)
Quarter: 2019Q2

REPORT INFORMATION
  Report Type: Spontaneous
  Country: FR (occurrence: FR)
  Receive Date: 20190415
  Receipt Date: 20190415
  Transmission Date: 20190711
  Serious: Yes (Hospitalization)
  Sender: FDA-Public Use
  Company Number: FR-TEVA-2019-FR-1037178

PATIENT
  Age: 95 Year
  Sex: Male

DRUGS (8)
  1. ELIQUIS [Suspect]
     Active Substance: APIXABAN
     Indication: CARDIOMYOPATHY
     Dosage: 2 DOSAGE FORMS DAILY;
     Route: 048
     Dates: start: 20190225, end: 20190312
  2. CALCIDOSE VITAMINE D, POUDRE ORALE EN SACHET-DOSE [Suspect]
     Active Substance: CALCIUM\CHOLECALCIFEROL
     Indication: HYPOVITAMINOSIS
     Dosage: 2 DOSAGE FORMS DAILY;  IN SACHET DOSE
     Route: 048
  3. ENANTONE LP [Suspect]
     Active Substance: LEUPROLIDE ACETATE
     Indication: PRODUCT USED FOR UNKNOWN INDICATION
     Route: 048
     Dates: end: 20190216
  4. IRBESARTAN. [Suspect]
     Active Substance: IRBESARTAN
     Indication: HYPERTENSION
     Dosage: 75 MILLIGRAM DAILY;
     Route: 048
  5. GINKGO (EXTRAIT DE) [Concomitant]
  6. BICALUTAMIDE. [Suspect]
     Active Substance: BICALUTAMIDE
     Indication: PRODUCT USED FOR UNKNOWN INDICATION
     Dosage: 50 MILLIGRAM DAILY;
     Route: 048
  7. DOLIPRANE [Suspect]
     Active Substance: ACETAMINOPHEN
     Indication: PAIN
     Dosage: 3 DOSAGE FORMS DAILY;
     Route: 048
  8. CHONDROITIN SULFATE SODIUM NOS [Suspect]
     Active Substance: CHONDROITIN SULFATE SODIUM NOS
     Indication: PRODUCT USED FOR UNKNOWN INDICATION
     Dosage: 500 MILLIGRAM DAILY;
     Route: 048

REACTIONS (1)
  - Thrombocytopenia [Not Recovered/Not Resolved]

NARRATIVE: CASE EVENT DATE: 20190306
